FAERS Safety Report 5604680-4 (Version None)
Quarter: 2008Q1

REPORT INFORMATION
  Report Type: 
  Country: None (occurrence: None)
  Receive Date: 20080124
  Receipt Date: 20080124
  Transmission Date: 20080703
  Serious: Yes (Other)
  Sender: FDA-Public Use
  Company Number: None

PATIENT
  Age: 29 Year
  Sex: Male
  Weight: 90.7194 kg

DRUGS (1)
  1. EQUATE NITE TIME COLD/FLU RELIEF ACE325MG DEX HYD15MG DOX PERRIGO, ALL [Suspect]
     Indication: MALAISE
     Dosage: 2 TABLET 1 TIME BEFORE BED PO
     Route: 048
     Dates: start: 20080122, end: 20080122

REACTIONS (2)
  - CONVULSION [None]
  - INCORRECT DOSE ADMINISTERED [None]
